FAERS Safety Report 5448375-9 (Version None)
Quarter: 2007Q3

REPORT INFORMATION
  Report Type: 
  Country: None (occurrence: None)
  Receive Date: 20070906
  Receipt Date: 20070828
  Transmission Date: 20080115
  Serious: Yes (Other)
  Sender: FDA-Public Use
  Company Number: 2007BI016622

PATIENT
  Age: 31 Year
  Sex: Female

DRUGS (1)
  1. TYSABRI [Suspect]
     Indication: MULTIPLE SCLEROSIS
     Dosage: 300 MG; QM; IV
     Route: 042
     Dates: start: 20070330

REACTIONS (7)
  - BREAST COSMETIC SURGERY [None]
  - HAEMORRHAGE [None]
  - INFLAMMATION [None]
  - POST PROCEDURAL COMPLICATION [None]
  - PROCEDURAL SITE REACTION [None]
  - SUTURE RELATED COMPLICATION [None]
  - TRANSFUSION REACTION [None]
